FAERS Safety Report 9925154 (Version 1)
Quarter: 2014Q1

REPORT INFORMATION
  Report Type: Spontaneous
  Country: US (occurrence: US)
  Receive Date: 20140226
  Receipt Date: 20140226
  Transmission Date: 20141002
  Serious: No
  Sender: FDA-Public Use
  Company Number: US-BAYER-2014-028344

PATIENT
  Age: 52 Year
  Sex: Female
  Weight: 72.11 kg

DRUGS (1)
  1. CLIMARA [Suspect]
     Dosage: UNK
     Route: 062
     Dates: end: 201309

REACTIONS (2)
  - Medication error [None]
  - Hot flush [None]
